FAERS Safety Report 14672518 (Version 2)
Quarter: 2018Q2

REPORT INFORMATION
  Report Type: Other
  Country: CA (occurrence: CA)
  Receive Date: 20180323
  Receipt Date: 20180422
  Transmission Date: 20180711
  Serious: Yes (Other)
  Sender: FDA-Public Use
  Company Number: CA-APOTEX-2018AP008255

PATIENT
  Age: 75 Year
  Sex: Male

DRUGS (2)
  1. SALBUTAMOL [Suspect]
     Active Substance: ALBUTEROL
     Dosage: 1 DF, UNK
     Route: 065
  2. SALBUTAMOL [Suspect]
     Active Substance: ALBUTEROL
     Indication: PRODUCT USED FOR UNKNOWN INDICATION
     Dosage: 100 MG, UNK
     Route: 065

REACTIONS (9)
  - Lower respiratory tract infection [Unknown]
  - Heart rate increased [Unknown]
  - Asthma [Unknown]
  - Secretion discharge [Unknown]
  - Blood count abnormal [Unknown]
  - Productive cough [Unknown]
  - Cough [Unknown]
  - Hypogammaglobulinaemia [Unknown]
  - Wheezing [Unknown]
